FAERS Safety Report 17668847 (Version 6)
Quarter: 2021Q3

REPORT INFORMATION
  Report Type: Other
  Country: KR (occurrence: KR)
  Receive Date: 20200415
  Receipt Date: 20210817
  Transmission Date: 20211014
  Serious: Yes (Death, Hospitalization, Other)
  Sender: FDA-Public Use
  Company Number: KR-ROCHE-2579168

PATIENT
  Age: 74 Year
  Sex: Male
  Weight: 68.3 kg

DRUGS (3)
  1. CAFSOL [Concomitant]
     Indication: MALNUTRITION
     Route: 042
     Dates: start: 20200207
  2. ATEZOLIZUMAB. [Suspect]
     Active Substance: ATEZOLIZUMAB
     Route: 041
     Dates: start: 20200226, end: 20200226
  3. ATEZOLIZUMAB. [Suspect]
     Active Substance: ATEZOLIZUMAB
     Indication: NON-SMALL CELL LUNG CANCER METASTATIC
     Route: 041
     Dates: start: 20200225

REACTIONS (3)
  - Pleural effusion [Recovering/Resolving]
  - Thrombocytopenia [Fatal]
  - Acute kidney injury [Not Recovered/Not Resolved]

NARRATIVE: CASE EVENT DATE: 20200314
